FAERS Safety Report 11163958 (Version 2)
Quarter: 2016Q2

REPORT INFORMATION
  Report Type: Report from Study
  Country: JP (occurrence: JP)
  Receive Date: 20150604
  Receipt Date: 20160414
  Transmission Date: 20160815
  Serious: No
  Sender: FDA-Public Use
  Company Number: JP-OTSUKA-2015_002273

PATIENT

DRUGS (11)
  1. ALDACTONE-A [Suspect]
     Active Substance: SPIRONOLACTONE
     Indication: FLUID RETENTION
     Dosage: 25 MG, DAILY DOSE
     Route: 048
     Dates: end: 20150406
  2. FUROSEMIDE. [Suspect]
     Active Substance: FUROSEMIDE
     Indication: FLUID RETENTION
     Dosage: 20 MG, DAILY DOSE
     Route: 048
  3. SPIRONOLACTONE. [Suspect]
     Active Substance: SPIRONOLACTONE
     Indication: FLUID RETENTION
     Dosage: 25 MG, DAILY DOSE
     Route: 048
  4. ALBUMIN [Concomitant]
     Active Substance: ALBUMIN HUMAN
     Indication: OEDEMA DUE TO HEPATIC DISEASE
     Dosage: 100 ML, DAILY DOSE
     Route: 042
     Dates: end: 20150408
  5. GLIMICRON [Concomitant]
     Active Substance: GLICLAZIDE
     Indication: PRODUCT USED FOR UNKNOWN INDICATION
     Dosage: 20 MG, DAILY DOSE
     Route: 048
     Dates: end: 20150406
  6. TOLVAPTAN [Suspect]
     Active Substance: TOLVAPTAN
     Indication: FLUID RETENTION
     Dosage: 3.75 MG, QD, IN THE MORNING
     Route: 048
     Dates: start: 20150413, end: 20150413
  7. TAKEPRON [Concomitant]
     Active Substance: LANSOPRAZOLE
     Indication: PRODUCT USED FOR UNKNOWN INDICATION
     Dosage: 15 MG, DAILY DOSE
     Route: 048
  8. TOLVAPTAN [Suspect]
     Active Substance: TOLVAPTAN
     Dosage: 7.5 MG, QD, IN THE MORNING
     Route: 048
     Dates: start: 20150414, end: 20150416
  9. LASIX M [Suspect]
     Active Substance: FUROSEMIDE
     Indication: FLUID RETENTION
     Dosage: 20 MG, DAILY DOSE
     Route: 048
     Dates: end: 20150406
  10. FUROSEMIDE. [Suspect]
     Active Substance: FUROSEMIDE
     Indication: FLUID RETENTION
     Dosage: 20 MG, DAILY DOSE
     Route: 042
     Dates: end: 20150409
  11. CEFAZOLIN [Concomitant]
     Active Substance: CEFAZOLIN
     Indication: PRODUCT USED FOR UNKNOWN INDICATION
     Dosage: 2 G, DAILY DOSE
     Route: 042
     Dates: end: 20150410

REACTIONS (3)
  - Dehydration [Recovered/Resolved]
  - Platelet count decreased [Unknown]
  - Orthostatic hypotension [Unknown]

NARRATIVE: CASE EVENT DATE: 20150414
